FAERS Safety Report 4541338-7 (Version None)
Quarter: 2004Q4

REPORT INFORMATION
  Report Type: 
  Country: None (occurrence: None)
  Receive Date: 20041227
  Receipt Date: 20041215
  Transmission Date: 20050328
  Serious: Yes (Hospitalization)
  Sender: FDA-Public Use
  Company Number: 2004EU002220

PATIENT
  Age: 52 Year
  Sex: Male

DRUGS (9)
  1. PROGRAF [Suspect]
     Indication: LIVER TRANSPLANT
     Dosage: 4.00 MG, UID/QD, ORAL; 2.00 MG, UID/QD, ORAL
     Route: 048
     Dates: start: 19990101
  2. MYCOPHENOLATE MOFETIL (MYCOPHENOLATE MOFETIL) [Suspect]
     Indication: LIVER TRANSPLANT
     Dosage: 2.00 G, UID/QD, ORAL
     Route: 048
     Dates: start: 19990101
  3. PREDNISONE [Concomitant]
  4. INSULIN [Concomitant]
  5. ENALAPRIL (ENALAPRIL) [Concomitant]
  6. OMEPRAZOLE [Concomitant]
  7. ALPRAZOLAM [Concomitant]
  8. CITALOPRAM [Concomitant]
  9. LAMIVUDINE (LAMIVUDINE) [Concomitant]

REACTIONS (2)
  - NEUTROPHIL PELGER-HUET ANOMALY PRESENT [None]
  - SHIFT TO THE LEFT [None]
